FAERS Safety Report 5032369-1 (Version None)
Quarter: 2006Q2

REPORT INFORMATION
  Report Type: 
  Country: None (occurrence: None)
  Receive Date: 20060508
  Receipt Date: 20050624
  Transmission Date: 20061013
  Serious: Yes (Hospitalization)
  Sender: FDA-Public Use
  Company Number: 232744K05USA

PATIENT
  Age: 56 Year
  Sex: Female

DRUGS (1)
  1. REBIF [Suspect]
     Indication: MULTIPLE SCLEROSIS
     Dates: start: 20050601, end: 20050601

REACTIONS (4)
  - DIZZINESS [None]
  - MULTIPLE SCLEROSIS [None]
  - NAUSEA [None]
  - NYSTAGMUS [None]
